FAERS Safety Report 21679069 (Version 2)
Quarter: 2022Q4

REPORT INFORMATION
  Report Type: Spontaneous
  Country: BR (occurrence: BR)
  Receive Date: 20221204
  Receipt Date: 20221209
  Transmission Date: 20230113
  Serious: Yes (Other)
  Sender: FDA-Public Use
  Company Number: BR-BAXTER-2022BAX025698

PATIENT
  Age: 33 Year
  Sex: Female

DRUGS (5)
  1. IRON [Suspect]
     Active Substance: IRON
     Indication: Anaemia
     Dosage: 20 MG/ML, 2 AMPOULES DILUTED IN 500 ML SALINE SOLUTION, WITH AN INFUSION SPEED OF 1 HOUR
     Route: 042
     Dates: start: 20221123
  2. IRON [Suspect]
     Active Substance: IRON
     Indication: Haemorrhage
  3. IRON [Suspect]
     Active Substance: IRON
     Indication: Tachycardia
  4. IRON [Suspect]
     Active Substance: IRON
     Indication: Syncope
  5. SODIUM CHLORIDE [Suspect]
     Active Substance: SODIUM CHLORIDE
     Indication: Medication dilution
     Dosage: 500 ML WITH INFUSON SPEED OF 1 HOUR (SLOW)
     Route: 042
     Dates: start: 20221123

REACTIONS (4)
  - Oedema peripheral [Recovered/Resolved]
  - Pruritus [Recovered/Resolved]
  - Off label use [Unknown]
  - Wrong technique in product usage process [Unknown]

NARRATIVE: CASE EVENT DATE: 20221123
